FAERS Safety Report 4439423-3 (Version None)
Quarter: 2004Q3

REPORT INFORMATION
  Report Type: 
  Country: None (occurrence: None)
  Receive Date: 20040728
  Receipt Date: 20040421
  Transmission Date: 20050211
  Serious: No
  Sender: FDA-Public Use
  Company Number: USA040362270

PATIENT
  Age: 7 Year
  Sex: Female
  Weight: 19 kg

DRUGS (1)
  1. STRATTERA [Suspect]
     Indication: ATTENTION DEFICIT/HYPERACTIVITY DISORDER
     Dosage: 25 MG DAY
     Dates: start: 20040303

REACTIONS (4)
  - FLUSHING [None]
  - RASH ERYTHEMATOUS [None]
  - SKIN DISCOLOURATION [None]
  - SOMNOLENCE [None]
